FAERS Safety Report 24200484 (Version 1)
Quarter: 2024Q3

REPORT INFORMATION
  Report Type: Spontaneous
  Country: FR (occurrence: FR)
  Receive Date: 20240812
  Receipt Date: 20240812
  Transmission Date: 20241017
  Serious: Yes (Hospitalization, Other)
  Sender: MYLAN
  Company Number: FR-MERCK-0707FRA00039

PATIENT
  Age: 56 Year
  Sex: Female

DRUGS (14)
  1. CISPLATIN [Interacting]
     Active Substance: CISPLATIN
     Indication: Lung neoplasm malignant
     Dosage: UNK
     Route: 042
     Dates: start: 20070425, end: 20070429
  2. CISPLATIN [Interacting]
     Active Substance: CISPLATIN
     Dosage: UNK
     Route: 042
     Dates: start: 20070521, end: 20070525
  3. CISPLATIN [Interacting]
     Active Substance: CISPLATIN
     Dosage: UNK
     Route: 042
     Dates: start: 20070611, end: 20070615
  4. CLOZAPINE [Interacting]
     Active Substance: CLOZAPINE
     Indication: Schizophrenia
     Dosage: UNK
     Route: 048
     Dates: start: 20011203
  5. ETOPOSIDE [Interacting]
     Active Substance: ETOPOSIDE
     Indication: Lung neoplasm malignant
     Dosage: UNK
     Route: 048
     Dates: start: 20070425, end: 20070429
  6. ETOPOSIDE [Interacting]
     Active Substance: ETOPOSIDE
     Dosage: UNK
     Route: 048
     Dates: start: 20070521, end: 20070525
  7. ETOPOSIDE [Interacting]
     Active Substance: ETOPOSIDE
     Dosage: UNK
     Route: 048
     Dates: start: 20070611, end: 20070615
  8. EMEND [Interacting]
     Active Substance: APREPITANT
     Indication: Prophylaxis of nausea and vomiting
     Dosage: UNK
     Route: 048
     Dates: start: 20070425, end: 20070427
  9. EMEND [Interacting]
     Active Substance: APREPITANT
     Dosage: UNK
     Route: 048
     Dates: start: 20070611, end: 20070613
  10. EMEND [Interacting]
     Active Substance: APREPITANT
     Dosage: UNK
     Route: 048
     Dates: start: 20070521, end: 20070523
  11. TROPATEPINE [Concomitant]
     Active Substance: TROPATEPINE
     Dosage: UNK
     Route: 048
  12. ANETHOLTRITHION [Concomitant]
     Active Substance: ANETHOLTRITHION
     Dosage: UNK
     Route: 048
  13. ACEPROMAZINE;ACEPROMETAZINE;CLORAZEPATE DIPOTASSIUM [Concomitant]
     Dosage: UNK
     Route: 048
  14. PRAZEPAM [Concomitant]
     Active Substance: PRAZEPAM
     Dosage: UNK
     Route: 048

REACTIONS (3)
  - Leukopenia [Recovered/Resolved]
  - Neutropenia [Recovered/Resolved]
  - Drug interaction [Recovered/Resolved]

NARRATIVE: CASE EVENT DATE: 20070608
